FAERS Safety Report 8044370-4 (Version None)
Quarter: 2012Q1

REPORT INFORMATION
  Report Type: 
  Country: None (occurrence: None)
  Receive Date: 20120113
  Receipt Date: 20120110
  Transmission Date: 20120608
  Serious: Yes (Other)
  Sender: FDA-Public Use
  Company Number: JP-B.I. PHARMACEUTICALS,INC./RIDGEFIELD-2011-BP-27937NB

PATIENT
  Sex: Female
  Weight: 55 kg

DRUGS (11)
  1. PRADAXA [Suspect]
     Dosage: 220 MG
     Route: 048
     Dates: start: 20111025, end: 20111202
  2. RABEPRAZOLE SODIUM [Concomitant]
     Indication: GASTROOESOPHAGEAL REFLUX DISEASE
     Dosage: 10 MG
     Route: 048
     Dates: start: 20100522
  3. BASEN OD [Concomitant]
     Indication: DIABETES MELLITUS
     Dosage: 0.3 MG
     Route: 048
     Dates: start: 20010323
  4. FERROUS CITRATE [Concomitant]
     Indication: IRON DEFICIENCY ANAEMIA
     Route: 048
     Dates: start: 20091031
  5. AMLODIN OD [Concomitant]
     Indication: HYPERTENSION
     Dosage: 2.5 MG
     Route: 048
     Dates: start: 19970303
  6. LANTUS [Concomitant]
     Indication: DIABETES MELLITUS
     Dosage: 20 U
     Route: 058
     Dates: start: 20100409
  7. URSO 250 [Concomitant]
     Indication: BILIARY CIRRHOSIS PRIMARY
     Dosage: 600 MG
     Route: 048
     Dates: start: 19970317
  8. DIGOXIN [Concomitant]
     Indication: TACHYCARDIA
     Dosage: 0.125 MG
     Route: 048
     Dates: start: 20091031
  9. DEPAS [Concomitant]
     Indication: NEUROSIS
     Dosage: 1 MG
     Route: 048
     Dates: start: 20100129
  10. LENDORMIN D [Concomitant]
     Indication: INSOMNIA
     Dosage: 0.25 MG
     Route: 048
     Dates: start: 20010824
  11. LOSARTAN POTASSIUM [Concomitant]
     Indication: HYPERTENSION
     Dosage: 25 MG
     Route: 048
     Dates: start: 20100622

REACTIONS (1)
  - OESOPHAGEAL ULCER [None]
